FAERS Safety Report 8618224-6 (Version None)
Quarter: 2012Q3

REPORT INFORMATION
  Report Type: 
  Country: None (occurrence: None)
  Receive Date: 20120824
  Receipt Date: 20120816
  Transmission Date: 20120928
  Serious: Yes (Other)
  Sender: FDA-Public Use
  Company Number: US-ASTRAZENECA-2011SE41513

PATIENT
  Age: 21228 Day
  Sex: Female

DRUGS (62)
  1. NEXIUM [Suspect]
     Route: 048
     Dates: start: 20021107
  2. ARMODAFINIL [Concomitant]
     Dates: start: 20060208
  3. BUT/ASA/CAFF [Concomitant]
     Dosage: TAKE ONE CAPSULE EVERY SIX HOURS AS NEEDED
     Dates: start: 20070521
  4. CELEXA [Concomitant]
     Dates: start: 20110912
  5. ELAVIL [Concomitant]
     Dates: start: 20021107
  6. PREDNISONE TAB [Concomitant]
     Dates: start: 20060313
  7. VICODIN/NORCO [Concomitant]
     Indication: PAIN
     Dates: start: 20021107
  8. VICODIN/NORCO [Concomitant]
     Dosage: 5MG-500MG
     Dates: start: 20060220
  9. CELEBREX [Concomitant]
     Dates: start: 20060201
  10. SUMATRIPTAN [Concomitant]
     Dosage: 50 MG TABLET TAKE ONE TABLET AT ONSET OF HEADACHE AND REPEAT IN TWO HOURS IF NEEDED
     Dates: start: 20070526
  11. STELAZINE [Concomitant]
     Dates: start: 20021107
  12. NEXIUM [Suspect]
     Route: 048
     Dates: start: 20070526
  13. PRILOSEC [Suspect]
     Indication: GASTROOESOPHAGEAL REFLUX DISEASE
     Route: 065
     Dates: start: 19950101, end: 20100101
  14. CORGARD [Concomitant]
     Dates: start: 20060920
  15. CORGARD [Concomitant]
     Dates: start: 20110912
  16. FIORICET [Concomitant]
     Dosage: TAKE ONE TABLET 4 TIMES DAILY AS NEEDED
     Dates: start: 20060911
  17. FIORICET [Concomitant]
     Dosage: 50-325-40 1 TABLET AS NEEDED EVERY FOUR HOURS
     Dates: start: 20110912
  18. BIAXIN XL [Concomitant]
     Dates: start: 20060220
  19. METHYLPREDNISOLONE [Concomitant]
     Dates: start: 20060216
  20. ROBAXIN [Concomitant]
     Dates: start: 20060216
  21. CELEBREX [Concomitant]
     Dates: start: 20021107
  22. BUT/ASA/CAFF [Concomitant]
     Indication: PAIN
     Dosage: 50/325/40 MG TAKE ONE TABLET EVERY FOUR HOURS AS NEEDED
     Dates: start: 20070521
  23. SUMATRIPTAN [Concomitant]
     Indication: HEADACHE
     Dates: start: 20060101
  24. NEXIUM [Suspect]
     Indication: GASTROOESOPHAGEAL REFLUX DISEASE
     Route: 048
     Dates: start: 19950101, end: 20100101
  25. NEXIUM [Suspect]
     Dosage: 40 MG CAPSULE AS DIRECTED
     Route: 048
     Dates: start: 20110912
  26. CEPHALEXIN [Concomitant]
     Dates: start: 20060315
  27. PREDNISONE TAB [Concomitant]
     Dosage: WITH FOOD OR MILK
     Dates: start: 20061002
  28. PREDNISONE TAB [Concomitant]
     Dosage: 5-10 MG PRN
     Dates: start: 20060919
  29. VICODIN/NORCO [Concomitant]
     Dosage: 10 MG-650 MG
     Dates: start: 20060203
  30. AMITRIPTYLINE HCL [Concomitant]
     Dates: start: 20040909
  31. ZYRTEC [Concomitant]
     Dates: start: 20060220
  32. KLONOPIN [Concomitant]
     Dates: start: 20060208
  33. KLONOPIN [Concomitant]
     Dates: start: 20070613
  34. LYRICA [Concomitant]
     Dates: start: 20110912
  35. VICODIN/NORCO [Concomitant]
     Dosage: 7.5-325 MG TAKE ONE TABLET EVERY SIX HOURS
     Dates: start: 20070531
  36. VICODIN/NORCO [Concomitant]
     Dosage: 7.5-325 MG AS NEEDED FOR PAIN EVERY SIX HOURS
     Dates: start: 20110912
  37. OMACOR [Concomitant]
     Dates: start: 20060223
  38. CORGARD [Concomitant]
     Dates: start: 20060223
  39. ELAVIL [Concomitant]
     Dates: start: 20110912
  40. SKELAXIN [Concomitant]
     Dates: start: 20110912
  41. CEPHALEXIN [Concomitant]
     Dates: start: 20070529
  42. AMITRIPTYLINE HCL [Concomitant]
     Dates: start: 20060308
  43. ROBAXIN [Concomitant]
     Dosage: 450 MG TABLET 1 TABLET EVERY FOUR HRS PRN
     Dates: start: 20110912
  44. KLONOPIN [Concomitant]
     Dates: start: 20110912
  45. NEXIUM [Suspect]
     Route: 048
     Dates: start: 20061106
  46. TEQUIN [Concomitant]
     Dates: start: 20060227
  47. CORGARD [Concomitant]
     Dates: start: 20021107
  48. LOMOTIL [Concomitant]
     Dosage: 2.5-0.25 MG
     Dates: start: 20060210
  49. CELEBREX [Concomitant]
     Dosage: WITH FOOD OR MILK
     Dates: start: 20060920
  50. LYRICA [Concomitant]
     Dates: start: 20070618
  51. CELEXA [Concomitant]
     Dates: start: 20021107
  52. BENADRYL [Concomitant]
     Dosage: 25 MG TWO TABLET PER DAY PRN
     Route: 048
     Dates: start: 20070905
  53. NEXIUM [Suspect]
     Route: 048
     Dates: start: 20060207
  54. RISPERDAL [Concomitant]
     Dates: start: 20040909
  55. RISPERDAL [Concomitant]
     Dates: start: 20060308
  56. FIORICET [Concomitant]
     Indication: TENSION HEADACHE
     Dates: start: 20021107
  57. FIORICET [Concomitant]
     Dosage: 325-40-50
     Dates: start: 20060220
  58. ROBAXIN [Concomitant]
     Dates: start: 20070531
  59. ROBAXIN [Concomitant]
     Dosage: 750 MG EVERY 4-6 HOURS PRN
     Route: 048
     Dates: start: 20070905
  60. CELEXA [Concomitant]
     Dates: start: 20041009
  61. CLARITIN-D [Concomitant]
     Dosage: ONE TABLET PER DAY PRN
     Route: 048
     Dates: start: 20070905
  62. LIBRIUM [Concomitant]
     Dosage: 10 MG PRN
     Dates: start: 20060919

REACTIONS (6)
  - OSTEOPENIA [None]
  - MENTAL DISORDER [None]
  - PAIN [None]
  - OSTEOPOROSIS [None]
  - PAIN IN EXTREMITY [None]
  - FOOT FRACTURE [None]
